FAERS Safety Report 6935773-7 (Version None)
Quarter: 2010Q3

REPORT INFORMATION
  Report Type: 
  Country: None (occurrence: None)
  Receive Date: 20100823
  Receipt Date: 20100713
  Transmission Date: 20110219
  Serious: Yes (Death, Life-Threatening, Hospitalization, Other)
  Sender: FDA-Public Use
  Company Number: US-BAXTER-2009BH008086

PATIENT
  Age: 77 Year
  Sex: Male

DRUGS (45)
  1. HEPARIN SODIUM INJECTION [Suspect]
     Indication: HAEMODIALYSIS
     Route: 010
     Dates: start: 20060801, end: 20080328
  2. HEPARIN SODIUM INJECTION [Suspect]
     Route: 042
     Dates: start: 20080102
  3. HEPARIN SODIUM INJECTION [Suspect]
     Route: 042
     Dates: start: 20080305
  4. HEPARIN SODIUM INJECTION [Suspect]
     Route: 040
     Dates: start: 20070912
  5. HEPARIN SODIUM INJECTION [Suspect]
     Route: 042
     Dates: start: 20080104
  6. HEPARIN SODIUM INJECTION [Suspect]
     Route: 042
     Dates: start: 20080307
  7. HEPARIN SODIUM INJECTION [Suspect]
     Route: 010
     Dates: start: 20070912
  8. HEPARIN SODIUM INJECTION [Suspect]
     Route: 042
     Dates: start: 20080107
  9. HEPARIN SODIUM INJECTION [Suspect]
     Route: 042
     Dates: start: 20080310
  10. HEPARIN SODIUM INJECTION [Suspect]
     Route: 040
     Dates: start: 20070914
  11. HEPARIN SODIUM INJECTION [Suspect]
     Route: 042
     Dates: start: 20080109
  12. HEPARIN SODIUM INJECTION [Suspect]
     Route: 042
     Dates: start: 20080225
  13. HEPARIN SODIUM INJECTION [Suspect]
     Route: 010
     Dates: start: 20070914
  14. HEPARIN SODIUM INJECTION [Suspect]
     Route: 042
     Dates: start: 20080111
  15. HEPARIN SODIUM INJECTION [Suspect]
     Route: 042
     Dates: start: 20080312
  16. HEPARIN SODIUM INJECTION [Suspect]
     Route: 042
     Dates: start: 20080114
  17. HEPARIN SODIUM INJECTION [Suspect]
     Route: 042
     Dates: start: 20080314
  18. HEPARIN SODIUM INJECTION [Suspect]
     Route: 042
     Dates: start: 20080116
  19. HEPARIN SODIUM INJECTION [Suspect]
     Route: 042
     Dates: start: 20080320
  20. HEPARIN SODIUM INJECTION [Suspect]
     Route: 042
     Dates: start: 20080118
  21. HEPARIN SODIUM INJECTION [Suspect]
     Route: 042
     Dates: start: 20080323
  22. HEPARIN SODIUM INJECTION [Suspect]
     Route: 042
     Dates: start: 20080121
  23. HEPARIN SODIUM INJECTION [Suspect]
     Route: 042
     Dates: start: 20080325
  24. HEPARIN SODIUM INJECTION [Suspect]
     Route: 042
     Dates: start: 20080123
  25. HEPARIN SODIUM INJECTION [Suspect]
     Route: 042
     Dates: start: 20080208
  26. HEPARIN SODIUM INJECTION [Suspect]
     Route: 042
     Dates: start: 20080125
  27. HEPARIN SODIUM INJECTION [Suspect]
     Route: 042
     Dates: start: 20080310
  28. HEPARIN SODIUM INJECTION [Suspect]
     Route: 042
     Dates: start: 20080128
  29. HEPARIN SODIUM INJECTION [Suspect]
     Route: 042
     Dates: start: 20080130
  30. HEPARIN SODIUM INJECTION [Suspect]
     Route: 042
     Dates: start: 20080201
  31. HEPARIN SODIUM INJECTION [Suspect]
     Route: 042
     Dates: start: 20080204
  32. HEPARIN SODIUM INJECTION [Suspect]
     Route: 042
     Dates: start: 20080206
  33. HEPARIN SODIUM INJECTION [Suspect]
     Route: 042
     Dates: start: 20080211
  34. HEPARIN SODIUM INJECTION [Suspect]
     Route: 042
     Dates: start: 20080213
  35. HEPARIN SODIUM INJECTION [Suspect]
     Route: 042
     Dates: start: 20080215
  36. HEPARIN SODIUM INJECTION [Suspect]
     Route: 042
     Dates: start: 20080218
  37. HEPARIN SODIUM INJECTION [Suspect]
     Route: 042
     Dates: start: 20080220
  38. HEPARIN SODIUM INJECTION [Suspect]
     Route: 042
     Dates: start: 20080222
  39. HEPARIN SODIUM INJECTION [Suspect]
     Route: 042
     Dates: start: 20080227
  40. HEPARIN SODIUM INJECTION [Suspect]
     Route: 042
     Dates: start: 20080229
  41. HEPARIN SODIUM INJECTION [Suspect]
     Route: 042
     Dates: start: 20080303
  42. HEPARIN SODIUM INJECTION [Suspect]
     Route: 040
     Dates: start: 20080225, end: 20080310
  43. HEPARIN SODIUM INJECTION [Suspect]
     Route: 042
     Dates: start: 20080225, end: 20080310
  44. LOVENOX [Concomitant]
     Indication: PRODUCT USED FOR UNKNOWN INDICATION
     Route: 058
  45. WARFARIN [Concomitant]
     Indication: PRODUCT USED FOR UNKNOWN INDICATION
     Route: 065

REACTIONS (15)
  - ATRIOVENTRICULAR BLOCK COMPLETE [None]
  - CARDIAC ARREST [None]
  - CARDIAC FAILURE CONGESTIVE [None]
  - CARDIOMYOPATHY [None]
  - EMPYEMA [None]
  - GASTROINTESTINAL HAEMORRHAGE [None]
  - HAEMOPHILUS INFECTION [None]
  - HYPERKALAEMIA [None]
  - INTERSTITIAL LUNG DISEASE [None]
  - LEUKOCYTOSIS [None]
  - MULTIPLE MYELOMA [None]
  - PNEUMONIA [None]
  - PULMONARY EMBOLISM [None]
  - RENAL FAILURE CHRONIC [None]
  - SEPSIS [None]
